FAERS Safety Report 6676793-X (Version None)
Quarter: 2010Q2

REPORT INFORMATION
  Report Type: 
  Country: None (occurrence: None)
  Receive Date: 20100412
  Receipt Date: 20100408
  Transmission Date: 20101027
  Serious: Yes (Other)
  Sender: FDA-Public Use
  Company Number: US-ROXANE LABORATORIES, INC.-2010-RO-00391RO

PATIENT
  Age: 12 Month
  Sex: Male

DRUGS (5)
  1. LAMOTRIGINE [Suspect]
     Indication: CONVULSION
  2. LAMOTRIGINE [Suspect]
  3. LAMOTRIGINE [Suspect]
  4. LEVETIRACETAM [Suspect]
     Indication: CONVULSION
  5. CLONAZEPAM [Suspect]
     Indication: CONVULSION

REACTIONS (4)
  - CONDITION AGGRAVATED [None]
  - EMOTIONAL DISORDER [None]
  - INSOMNIA [None]
  - PSYCHOMOTOR HYPERACTIVITY [None]
